FAERS Safety Report 19910907 (Version 1)
Quarter: 2021Q4

REPORT INFORMATION
  Report Type: Spontaneous
  Country: US (occurrence: US)
  Receive Date: 20211004
  Receipt Date: 20211004
  Transmission Date: 20220303
  Serious: No
  Sender: FDA-Public Use
  Company Number: US-ORGANON-O2109USA001393

PATIENT
  Sex: Female

DRUGS (10)
  1. COZAAR [Suspect]
     Active Substance: LOSARTAN POTASSIUM
     Indication: Renal disorder
     Dosage: UNK
     Route: 048
     Dates: start: 202101
  2. COZAAR [Suspect]
     Active Substance: LOSARTAN POTASSIUM
     Indication: Protein urine present
  3. OXYCODONE AND ACETAMINOPHEN [Concomitant]
     Active Substance: ACETAMINOPHEN\OXYCODONE HYDROCHLORIDE
     Dosage: 7.5 TO 325 UP TO 3 TIMES DAILY
  4. TOPAMAX [Concomitant]
     Active Substance: TOPIRAMATE
     Dosage: 50 MILLIGRAM, BID
  5. ALLEGRA [Concomitant]
     Active Substance: FEXOFENADINE HYDROCHLORIDE
  6. MONTELUKAST [Concomitant]
     Active Substance: MONTELUKAST SODIUM
     Dosage: 10 MILLIGRAM, QD
  7. PRAVASTATIN [Concomitant]
     Active Substance: PRAVASTATIN
     Dosage: 20 MILLIGRAM, QD
  8. PANTOPRAZOLE [Concomitant]
     Active Substance: PANTOPRAZOLE
  9. VITAMIN D NOS [Concomitant]
     Active Substance: VITAMIN D NOS
     Dosage: 2000 DAILY
  10. CALCIUM [Concomitant]
     Active Substance: CALCIUM
     Dosage: 600 TWICE DAILY

REACTIONS (6)
  - Sleep deficit [Not Recovered/Not Resolved]
  - Renal disorder [Not Recovered/Not Resolved]
  - Pain [Not Recovered/Not Resolved]
  - Bradyphrenia [Not Recovered/Not Resolved]
  - Visual impairment [Not Recovered/Not Resolved]
  - Product use in unapproved indication [Unknown]

NARRATIVE: CASE EVENT DATE: 20210101
